FAERS Safety Report 15789730 (Version 1)
Quarter: 2019Q1

REPORT INFORMATION
  Report Type: Spontaneous
  Country: US (occurrence: US)
  Receive Date: 20190103
  Receipt Date: 20190103
  Transmission Date: 20190417
  Serious: Yes (Other)
  Sender: FDA-Public Use
  Company Number: None

PATIENT
  Age: 71 Year
  Sex: Male

DRUGS (10)
  1. WARFARIN [Concomitant]
     Active Substance: WARFARIN
     Dates: start: 20180417
  2. ATORVASTATIN [Concomitant]
     Active Substance: ATORVASTATIN
     Dates: start: 20180417
  3. CARVEDILOL. [Concomitant]
     Active Substance: CARVEDILOL
     Dates: start: 20180417
  4. DULOXETINE. [Concomitant]
     Active Substance: DULOXETINE
     Dates: start: 20180417
  5. MULTI-VITAMIN [Concomitant]
     Active Substance: .ALPHA.-TOCOPHEROL ACETATE, DL-\ASCORBIC ACID\CYANOCOBALAMIN\FLUORIDE ION\FOLIC ACID\NIACIN\PYRIDOXINE\RIBOFLAVIN\THIAMINE\VITAMIN A\VITAMIN D
     Dates: start: 20180417
  6. TRAMADOL HCL [Concomitant]
     Active Substance: TRAMADOL HYDROCHLORIDE
     Dates: start: 20180417
  7. GLATIRAMER [Suspect]
     Active Substance: GLATIRAMER
     Indication: MULTIPLE SCLEROSIS
     Dosage: ?          OTHER FREQUENCY:THREE TIMES A WEEK;?
     Route: 058
     Dates: start: 20180601
  8. ALFUZOSIN [Concomitant]
     Active Substance: ALFUZOSIN
     Dates: start: 20180417
  9. IRBESARTAN. [Concomitant]
     Active Substance: IRBESARTAN
     Dates: start: 20180417
  10. MYRBETRIQ [Concomitant]
     Active Substance: MIRABEGRON
     Dates: start: 20180709

REACTIONS (3)
  - Loss of personal independence in daily activities [None]
  - Fatigue [None]
  - Spinal cord abscess [None]
